FAERS Safety Report 13936765 (Version 3)
Quarter: 2017Q4

REPORT INFORMATION
  Report Type: Spontaneous
  Country: US (occurrence: US)
  Receive Date: 20170905
  Receipt Date: 20171212
  Transmission Date: 20180320
  Serious: No
  Sender: FDA-Public Use
  Company Number: US-PFIZER INC-2017381567

PATIENT
  Sex: Female
  Weight: 45.36 kg

DRUGS (8)
  1. MIRALAX [Concomitant]
     Active Substance: POLYETHYLENE GLYCOL 3350
     Indication: BOWEL MOVEMENT IRREGULARITY
     Dosage: UNK
  2. XANAX [Suspect]
     Active Substance: ALPRAZOLAM
     Dosage: 2 MG, 2X/DAY
  3. PERCOCET [Concomitant]
     Active Substance: ACETAMINOPHEN\OXYCODONE HYDROCHLORIDE
     Dosage: UNK
  4. XANAX [Suspect]
     Active Substance: ALPRAZOLAM
     Dosage: 1 MG, 2X/DAY
     Route: 048
     Dates: start: 1991
  5. XANAX [Suspect]
     Active Substance: ALPRAZOLAM
     Indication: PANIC ATTACK
     Dosage: 1 MG, 3X/DAY
     Dates: start: 1991
  6. XANAX [Suspect]
     Active Substance: ALPRAZOLAM
     Dosage: 2 MG, 1X/DAY
  7. ALPRAZOLAM. [Concomitant]
     Active Substance: ALPRAZOLAM
     Dosage: UNK
  8. PREMARIN [Concomitant]
     Active Substance: ESTROGENS, CONJUGATED
     Dosage: UNK

REACTIONS (10)
  - Metabolic disorder [Unknown]
  - Malaise [Unknown]
  - Body height decreased [Unknown]
  - Drug ineffective [Unknown]
  - Feeling of body temperature change [Unknown]
  - Intentional product misuse [Unknown]
  - Tremor [Unknown]
  - Withdrawal syndrome [Unknown]
  - Poor quality sleep [Unknown]
  - Drug level fluctuating [Unknown]
